FAERS Safety Report 8487304-0 (Version None)
Quarter: 2012Q3

REPORT INFORMATION
  Report Type: 
  Country: None (occurrence: None)
  Receive Date: 20120705
  Receipt Date: 20120628
  Transmission Date: 20120928
  Serious: No
  Sender: FDA-Public Use
  Company Number: US-BIOGENIDEC-2012BI023113

PATIENT
  Sex: Female

DRUGS (3)
  1. TYSABRI [Suspect]
     Indication: CROHN'S DISEASE
     Route: 042
     Dates: start: 20090323, end: 20100518
  2. TYSABRI [Suspect]
     Route: 042
     Dates: start: 20110330, end: 20110525
  3. TYSABRI [Suspect]
     Route: 042
     Dates: start: 20110825, end: 20120424

REACTIONS (2)
  - DRUG INEFFECTIVE [None]
  - ANXIETY [None]
